FAERS Safety Report 4760368-3 (Version None)
Quarter: 2005Q3

REPORT INFORMATION
  Report Type: 
  Country: None (occurrence: None)
  Receive Date: 20050902
  Receipt Date: 20050826
  Transmission Date: 20060218
  Serious: Yes (Other)
  Sender: FDA-Public Use
  Company Number: TW-ABBOTT-05P-153-0309792-00

PATIENT
  Age: 45 Year
  Sex: Female
  Weight: 58 kg

DRUGS (6)
  1. REDUCTIL 15MG [Suspect]
     Indication: OBESITY
     Route: 048
     Dates: start: 20030101, end: 20050815
  2. GINGKGO LEAF [Concomitant]
     Indication: MEDICAL DIET
     Route: 048
  3. GRAPE SEED [Concomitant]
     Indication: MEDICAL DIET
     Route: 048
  4. CALCIUM GLUCONATE [Concomitant]
     Indication: MEDICAL DIET
     Route: 048
  5. ORLISTAT [Concomitant]
     Indication: OBESITY
     Route: 048
     Dates: start: 20030101
  6. LAXATIVES [Concomitant]
     Indication: DRUG USE FOR UNKNOWN INDICATION
     Route: 048
     Dates: start: 20030101

REACTIONS (3)
  - CATARACT [None]
  - UNEVALUABLE EVENT [None]
  - VISUAL DISTURBANCE [None]
